FAERS Safety Report 18395277 (Version 5)
Quarter: 2020Q4

REPORT INFORMATION
  Report Type: Spontaneous
  Country: PT (occurrence: PT)
  Receive Date: 20201017
  Receipt Date: 20201211
  Transmission Date: 20210114
  Serious: Yes (Life-Threatening, Other)
  Sender: FDA-Public Use
  Company Number: PT-AUROBINDO-AUR-APL-2018-039755

PATIENT
  Age: 6 Year
  Sex: Male

DRUGS (9)
  1. LEVOCETIRIZINE FILM-COATED TABLET [Interacting]
     Active Substance: LEVOCETIRIZINE
     Indication: PRODUCT USED FOR UNKNOWN INDICATION
     Dosage: UNK UNK, DAILY
     Route: 065
  2. MONTELUKAST [Suspect]
     Active Substance: MONTELUKAST SODIUM
     Indication: ASTHMA
     Dosage: UNK, ONCE A DAY
     Route: 065
  3. PARACETAMOL [Interacting]
     Active Substance: ACETAMINOPHEN
     Indication: DRUG PROVOCATION TEST
     Dosage: 290 MILLIGRAM
     Route: 048
  4. IBUPROFEN. [Concomitant]
     Active Substance: IBUPROFEN
     Indication: HEADACHE
     Dosage: UNK
     Route: 065
  5. BUDESONIDE. [Interacting]
     Active Substance: BUDESONIDE
     Indication: PRODUCT USED FOR UNKNOWN INDICATION
     Dosage: UNK UNK, DAILY
     Route: 045
  6. BENURON [Suspect]
     Active Substance: ACETAMINOPHEN
     Indication: HEADACHE
     Dosage: 290 MILLIGRAM
     Route: 048
  7. PARACETAMOL [Interacting]
     Active Substance: ACETAMINOPHEN
     Indication: HEADACHE
  8. MONTELUKAST [Interacting]
     Active Substance: MONTELUKAST SODIUM
     Indication: RHINITIS
  9. XYZAL [Suspect]
     Active Substance: LEVOCETIRIZINE DIHYDROCHLORIDE
     Indication: RHINITIS
     Dosage: 1, ONCE A DAY
     Route: 065

REACTIONS (14)
  - Loss of consciousness [Unknown]
  - Vomiting [Unknown]
  - Bronchospasm [Recovered/Resolved]
  - Condition aggravated [Recovered/Resolved]
  - Wheezing [Unknown]
  - Drug interaction [Recovered/Resolved]
  - Angioedema [Recovered/Resolved]
  - Cough [Recovered/Resolved]
  - Headache [Unknown]
  - Dyspnoea [Unknown]
  - Urticaria [Recovered/Resolved]
  - Respiratory distress [Unknown]
  - Anaphylactic reaction [Recovered/Resolved]
  - Eosinophilia [Recovered/Resolved]
